FAERS Safety Report 6968271-5 (Version None)
Quarter: 2010Q3

REPORT INFORMATION
  Report Type: 
  Country: None (occurrence: None)
  Receive Date: 20100901
  Receipt Date: 20100817
  Transmission Date: 20110219
  Serious: Yes (Other)
  Sender: FDA-Public Use
  Company Number: US-ACCORD-005863

PATIENT
  Age: 42 Year
  Sex: Female

DRUGS (1)
  1. MYCOPHENOLATE MOFETIL [Suspect]
     Indication: AUTOIMMUNE HEPATITIS
     Dosage: 1500.00-MG-2.00P / ER-1.0 DAYS

REACTIONS (3)
  - HODGKIN'S DISEASE [None]
  - LYMPHOPROLIFERATIVE DISORDER [None]
  - OFF LABEL USE [None]
